FAERS Safety Report 7212652-1 (Version None)
Quarter: 2011Q1

REPORT INFORMATION
  Report Type: 
  Country: None (occurrence: None)
  Receive Date: 20110106
  Receipt Date: 20101229
  Transmission Date: 20110831
  Serious: Yes (Hospitalization)
  Sender: FDA-Public Use
  Company Number: US-SANOFI-AVENTIS-2010SA060813

PATIENT
  Age: 63 Year
  Sex: Female

DRUGS (3)
  1. APIDRA [Suspect]
     Dosage: 10 UNITS AND 8 UNITS VIA THE PUMP
  2. APIDRA [Suspect]
     Dosage: 10 UNITS AND 8 UNITS VIA THE PUMP
  3. APIDRA [Suspect]
     Dosage: 10 UNITS AND 8 UNITS VIA THE PUMP

REACTIONS (4)
  - ABDOMINAL DISCOMFORT [None]
  - DIABETIC HYPERGLYCAEMIC COMA [None]
  - MALAISE [None]
  - PRODUCT QUALITY ISSUE [None]
